FAERS Safety Report 12139278 (Version 5)
Quarter: 2016Q3

REPORT INFORMATION
  Report Type: Report from Study
  Country: CA (occurrence: CA)
  Receive Date: 20160303
  Receipt Date: 20160701
  Transmission Date: 20161109
  Serious: Yes (Death, Hospitalization, Other)
  Sender: FDA-Public Use
  Company Number: CA-ROCHE-1600717

PATIENT
  Age: 79 Year
  Sex: Male

DRUGS (16)
  1. ACETYLSALICYLIC ACID [Concomitant]
     Active Substance: ASPIRIN
     Route: 065
  2. LACTULOSE. [Concomitant]
     Active Substance: LACTULOSE
  3. ESBRIET [Suspect]
     Active Substance: PIRFENIDONE
     Indication: IDIOPATHIC PULMONARY FIBROSIS
     Route: 048
     Dates: start: 20150512, end: 201606
  4. OXYGEN. [Concomitant]
     Active Substance: OXYGEN
  5. ESBRIET [Suspect]
     Active Substance: PIRFENIDONE
     Dosage: 534 MG-801MG-534 MG
     Route: 048
     Dates: start: 20150709
  6. ESBRIET [Suspect]
     Active Substance: PIRFENIDONE
     Dosage: 534MG-534MG-801MG
     Route: 048
     Dates: start: 20150902
  7. DIAMICRON [Concomitant]
     Active Substance: GLICLAZIDE
  8. ESBRIET [Suspect]
     Active Substance: PIRFENIDONE
     Dosage: 801MG-534MG-801MG
     Route: 048
     Dates: start: 20150725
  9. SINEMET [Concomitant]
     Active Substance: CARBIDOPA\LEVODOPA
  10. SYNTHROID [Concomitant]
     Active Substance: LEVOTHYROXINE SODIUM
  11. DOMPERIDONE [Concomitant]
     Active Substance: DOMPERIDONE
  12. LIPITOR [Concomitant]
     Active Substance: ATORVASTATIN CALCIUM
  13. ESBRIET [Suspect]
     Active Substance: PIRFENIDONE
     Route: 048
     Dates: start: 20150527
  14. ESBRIET [Suspect]
     Active Substance: PIRFENIDONE
     Route: 048
     Dates: start: 20150702
  15. ESBRIET [Suspect]
     Active Substance: PIRFENIDONE
     Route: 048
     Dates: start: 20150519
  16. ESBRIET [Suspect]
     Active Substance: PIRFENIDONE
     Route: 048
     Dates: start: 20150624

REACTIONS (17)
  - Hot flush [Not Recovered/Not Resolved]
  - Death [Fatal]
  - Hypotension [Unknown]
  - Decreased appetite [Recovering/Resolving]
  - Hyperhidrosis [Unknown]
  - Asthenia [Recovering/Resolving]
  - Infection [Not Recovered/Not Resolved]
  - Flushing [Unknown]
  - Oedema [Unknown]
  - Rash [Not Recovered/Not Resolved]
  - Intentional product use issue [Unknown]
  - Sepsis [Recovered/Resolved]
  - Nephrolithiasis [Unknown]
  - Abdominal discomfort [Not Recovered/Not Resolved]
  - Fatigue [Recovering/Resolving]
  - Intentional product misuse [Unknown]
  - Blood pressure decreased [Unknown]

NARRATIVE: CASE EVENT DATE: 20150512
